FAERS Safety Report 8995889 (Version 1)
Quarter: 2013Q1

REPORT INFORMATION
  Report Type: Spontaneous
  Country: US (occurrence: US)
  Receive Date: 20130103
  Receipt Date: 20130103
  Transmission Date: 20140127
  Serious: Yes (Hospitalization)
  Sender: FDA-Public Use
  Company Number: US-ABBOTT-12P-163-1028078-00

PATIENT
  Age: 59 None
  Sex: Female
  Weight: 90.8 kg

DRUGS (11)
  1. HUMIRA [Suspect]
     Indication: CROHN^S DISEASE
     Dates: start: 201210, end: 201210
  2. HUMIRA [Suspect]
     Dates: start: 2012, end: 2012
  3. HUMIRA [Suspect]
     Dates: start: 2012, end: 2012
  4. HUMIRA [Suspect]
     Dates: start: 201212
  5. LISINOPRIL [Concomitant]
     Indication: RENAL DISORDER
  6. LISINOPRIL [Concomitant]
     Indication: PROPHYLAXIS
  7. LISINOPRIL [Concomitant]
     Indication: DIABETES MELLITUS
  8. AMARYL [Concomitant]
     Indication: TYPE 2 DIABETES MELLITUS
  9. UNKNOWN HORMONE REPLACEMENT [Concomitant]
     Indication: HORMONE REPLACEMENT THERAPY
  10. TRAZODONE [Concomitant]
     Indication: ANXIETY
  11. AMARYL [Concomitant]

REACTIONS (4)
  - Intestinal obstruction [Recovered/Resolved]
  - Abdominal distension [Recovered/Resolved]
  - Abdominal pain [Recovered/Resolved]
  - Blood pressure increased [Unknown]
